FAERS Safety Report 13401243 (Version 1)
Quarter: 2017Q2

REPORT INFORMATION
  Report Type: Spontaneous
  Country: IT (occurrence: IT)
  Receive Date: 20170404
  Receipt Date: 20170404
  Transmission Date: 20170830
  Serious: Yes (Other)
  Sender: FDA-Public Use
  Company Number: IT-DUCHESNAY INC.-1064971

PATIENT
  Age: 58 Year
  Sex: Female

DRUGS (1)
  1. OSPHENA [Suspect]
     Active Substance: OSPEMIFENE
     Indication: PRODUCT USED FOR UNKNOWN INDICATION
     Dates: start: 201610, end: 201703

REACTIONS (2)
  - Endometrial thickening [Unknown]
  - Endometrial disorder [Unknown]

NARRATIVE: CASE EVENT DATE: 20170317
